FAERS Safety Report 14662644 (Version 1)
Quarter: 2018Q1

REPORT INFORMATION
  Report Type: Report from Study
  Country: ES (occurrence: ES)
  Receive Date: 20180321
  Receipt Date: 20180321
  Transmission Date: 20180509
  Serious: Yes (Hospitalization, Other)
  Sender: FDA-Public Use
  Company Number: ES-VELOXIS PHARMACEUTICALS-2044181

PATIENT
  Age: 53 Year
  Sex: Female

DRUGS (13)
  1. MICOFENOLATO MOFETIL [Concomitant]
     Active Substance: MYCOPHENOLATE MOFETIL
  2. ASP0113 [Suspect]
     Active Substance: INVESTIGATIONAL PRODUCT
     Route: 030
     Dates: start: 20160701, end: 20160701
  3. OMEPRAZOL /00661201/ [Concomitant]
     Active Substance: OMEPRAZOLE
  4. ASP0113 [Suspect]
     Active Substance: INVESTIGATIONAL PRODUCT
     Route: 030
     Dates: start: 20160418, end: 20160418
  5. CALCIUM SANDOZ /00060701/ [Concomitant]
     Active Substance: CALCIUM GLUCONATE
  6. ASP0113 [Suspect]
     Active Substance: INVESTIGATIONAL PRODUCT
     Route: 030
     Dates: start: 20160725, end: 20160725
  7. ONDANSETRON [Concomitant]
     Active Substance: ONDANSETRON
  8. ASP0113 [Suspect]
     Active Substance: INVESTIGATIONAL PRODUCT
     Route: 030
     Dates: start: 20160524, end: 20160524
  9. BUDESONIDA [Concomitant]
  10. ENVARSUS XR [Suspect]
     Active Substance: TACROLIMUS
     Indication: IMMUNOSUPPRESSANT DRUG THERAPY
     Route: 048
     Dates: start: 20161212, end: 20161212
  11. LORAZEPAM. [Concomitant]
     Active Substance: LORAZEPAM
  12. MAGNOGENE /07370001/ [Concomitant]
  13. ASP0113 [Suspect]
     Active Substance: INVESTIGATIONAL PRODUCT
     Route: 030
     Dates: start: 20161104, end: 20161104

REACTIONS (5)
  - Acute graft versus host disease in intestine [Recovered/Resolved]
  - Respiratory tract infection [Recovered/Resolved]
  - Intentional product misuse [None]
  - Acute graft versus host disease in skin [Recovered/Resolved]
  - Thrombotic microangiopathy [Recovered/Resolved]

NARRATIVE: CASE EVENT DATE: 20161212
